FAERS Safety Report 12885333 (Version 1)
Quarter: 2016Q4

REPORT INFORMATION
  Report Type: Report from Study
  Country: JP (occurrence: JP)
  Receive Date: 20161026
  Receipt Date: 20161026
  Transmission Date: 20170207
  Serious: Yes (Hospitalization)
  Sender: FDA-Public Use
  Company Number: JP-TEVA-672732ISR

PATIENT
  Age: 75 Year
  Sex: Male
  Weight: 48.6 kg

DRUGS (13)
  1. DAIKENCHUTO [Concomitant]
     Active Substance: HERBALS
     Dosage: ONGOING
     Dates: start: 20070824
  2. LAXOBERON [Concomitant]
     Active Substance: SODIUM PICOSULFATE
     Dates: start: 20151130, end: 20160621
  3. RASAGILINE MESILATE [Suspect]
     Active Substance: RASAGILINE MESYLATE
     Indication: PARKINSON^S DISEASE
     Dosage: 1 MILLIGRAM DAILY;
     Route: 048
     Dates: start: 20150623, end: 20160530
  4. STALEVO [Concomitant]
     Active Substance: CARBIDOPA\ENTACAPONE\LEVODOPA
     Dates: start: 20141224, end: 20160621
  5. GASMOTIN [Concomitant]
     Active Substance: MOSAPRIDE CITRATE
     Dosage: ONGOING
     Dates: start: 20070824
  6. MAGLAX [Concomitant]
     Active Substance: MAGNESIUM OXIDE
     Dates: start: 20151130, end: 20160621
  7. SEROQUEL [Concomitant]
     Active Substance: QUETIAPINE FUMARATE
     Dosage: ONGOING
     Dates: start: 20110226
  8. ARICEPT [Concomitant]
     Active Substance: DONEPEZIL HYDROCHLORIDE
     Dates: start: 20120128, end: 20160621
  9. NEODOPASTON [Concomitant]
     Active Substance: CARBIDOPA\LEVODOPA
     Dates: start: 20131125, end: 20160621
  10. LANDSEN [Concomitant]
     Active Substance: CLONAZEPAM
     Dosage: ONGOING
     Dates: start: 20080606
  11. NEUPRO [Concomitant]
     Active Substance: ROTIGOTINE
     Dosage: ONGOING
     Dates: start: 20140807
  12. REQUIP [Concomitant]
     Active Substance: ROPINIROLE HYDROCHLORIDE
     Dates: start: 20140806, end: 20160621
  13. RINDERON VG [Concomitant]
     Active Substance: BETAMETHASONE VALERATE\GENTAMICIN SULFATE
     Dates: start: 20140929, end: 20160621

REACTIONS (1)
  - Decubitus ulcer [Not Recovered/Not Resolved]

NARRATIVE: CASE EVENT DATE: 20151225
